FAERS Safety Report 20101777 (Version 1)
Quarter: 2021Q4

REPORT INFORMATION
  Report Type: Spontaneous
  Country: US (occurrence: None)
  Receive Date: 20211122
  Receipt Date: 20211122
  Transmission Date: 20220303
  Serious: Yes (Death)
  Sender: FDA-Public Use
  Company Number: None

PATIENT
  Age: 65 Year
  Sex: Female

DRUGS (18)
  1. REPATHA [Suspect]
     Active Substance: EVOLOCUMAB
     Indication: Hyperlipidaemia
     Dosage: OTHER FREQUENCY : Q2WKS;?
     Route: 058
     Dates: start: 20180118, end: 20211115
  2. REPATHA [Suspect]
     Active Substance: EVOLOCUMAB
     Indication: Arteriosclerosis
  3. ACYCLOVIR [Concomitant]
     Active Substance: ACYCLOVIR
  4. ALLOPURINOL [Concomitant]
     Active Substance: ALLOPURINOL
  5. ASPIRIN [Concomitant]
     Active Substance: ASPIRIN
  6. A-HYDROCORT [Concomitant]
     Active Substance: HYDROCORTISONE SODIUM SUCCINATE
  7. LATANOPROST [Concomitant]
     Active Substance: LATANOPROST
  8. METOPROLOL TARTRATE [Concomitant]
     Active Substance: METOPROLOL TARTRATE
  9. MIDODRINE [Concomitant]
     Active Substance: MIDODRINE
  10. ONDANSETRON [Concomitant]
     Active Substance: ONDANSETRON
  11. PANTOPRAZOLE [Concomitant]
     Active Substance: PANTOPRAZOLE
  12. PREDNISONE [Concomitant]
     Active Substance: PREDNISONE
  13. PREGABALIN [Concomitant]
     Active Substance: PREGABALIN
  14. QUETIAPINE [Concomitant]
     Active Substance: QUETIAPINE
  15. SULFAMETHOXAZOLE\TRIMETHOPRIM [Concomitant]
     Active Substance: SULFAMETHOXAZOLE\TRIMETHOPRIM
  16. VITAMIN D NOS [Concomitant]
     Active Substance: VITAMIN D NOS
  17. VORICONAZOLE [Concomitant]
     Active Substance: VORICONAZOLE
  18. VYVANSE [Concomitant]
     Active Substance: LISDEXAMFETAMINE DIMESYLATE

REACTIONS (1)
  - Death [None]

NARRATIVE: CASE EVENT DATE: 20211115
